FAERS Safety Report 10853641 (Version 2)
Quarter: 2015Q1

REPORT INFORMATION
  Report Type: Spontaneous
  Country: US (occurrence: US)
  Receive Date: 20150223
  Receipt Date: 20150326
  Transmission Date: 20150721
  Serious: No
  Sender: FDA-Public Use
  Company Number: US-PFIZER INC-2015062671

PATIENT
  Age: 48 Year
  Sex: Female
  Weight: 63 kg

DRUGS (7)
  1. ADVAIR DISKUS [Concomitant]
     Active Substance: FLUTICASONE PROPIONATE\SALMETEROL XINAFOATE
     Indication: COUGH
     Dosage: 1 DF, 2X/DAY (1 PUFF TWICE A DAY)
  2. BIAXIN [Suspect]
     Active Substance: CLARITHROMYCIN
     Indication: COUGH
     Dosage: UNK
  3. PREDNISONE. [Concomitant]
     Active Substance: PREDNISONE
     Indication: COUGH
     Dosage: UNK
  4. SINGULAIR [Concomitant]
     Active Substance: MONTELUKAST SODIUM
     Indication: COUGH
     Dosage: 10 MG, 1X/DAY (1 TABLET DAILY AT BEDTIME OR DINNER)
  5. QVAR [Concomitant]
     Active Substance: BECLOMETHASONE DIPROPIONATE
     Indication: COUGH
     Dosage: 2 DF, 2X/DAY (2 PUFFS TWICE DAILY)
  6. DOXYCYCLINE CALCIUM [Suspect]
     Active Substance: DOXYCYCLINE CALCIUM
     Indication: COUGH
     Dosage: UNK
  7. NEBULIZED SALINE [Concomitant]
     Dosage: UNK, AS NEEDED (1 VIAL EVERY 2 HOURS)

REACTIONS (1)
  - Drug ineffective [Unknown]
